FAERS Safety Report 6868159-4 (Version None)
Quarter: 2010Q3

REPORT INFORMATION
  Report Type: 
  Country: None (occurrence: None)
  Receive Date: 20100722
  Receipt Date: 20080516
  Transmission Date: 20110219
  Serious: Yes (Other)
  Sender: FDA-Public Use
  Company Number: US-PFIZER INC-2008043139

PATIENT
  Sex: Female
  Weight: 70 kg

DRUGS (10)
  1. CHANTIX [Suspect]
     Indication: SMOKING CESSATION THERAPY
     Route: 048
     Dates: start: 20080510, end: 20080513
  2. ASPIRIN [Concomitant]
     Dosage: DAY
  3. ACTOS [Concomitant]
     Indication: DIABETES MELLITUS
  4. CLONAZEPAM [Concomitant]
     Indication: ANXIETY
  5. CINNAMON [Concomitant]
  6. GARLIC [Concomitant]
  7. LOVAZA [Concomitant]
  8. VALSARTAN [Concomitant]
     Indication: BLOOD PRESSURE
  9. METFORMIN [Concomitant]
  10. GLIPIZIDE [Concomitant]

REACTIONS (3)
  - ANXIETY [None]
  - DEPRESSION [None]
  - SUICIDAL IDEATION [None]
